FAERS Safety Report 20199292 (Version 1)
Quarter: 2021Q4

REPORT INFORMATION
  Report Type: Spontaneous
  Country: US (occurrence: None)
  Receive Date: 20211216
  Receipt Date: 20211216
  Transmission Date: 20220303
  Serious: Yes (Life-Threatening)
  Sender: FDA-Public Use
  Company Number: None

PATIENT
  Age: 64 Year
  Sex: Male
  Weight: 78.7 kg

DRUGS (1)
  1. XELJANZ [Suspect]
     Active Substance: TOFACITINIB CITRATE
     Indication: Colitis ulcerative
     Dosage: FREQUENCY : TWICE A DAY;?
     Route: 048
     Dates: start: 20200609, end: 20210512

REACTIONS (1)
  - Diffuse large B-cell lymphoma [None]

NARRATIVE: CASE EVENT DATE: 20210615
